FAERS Safety Report 14299376 (Version 1)
Quarter: 2017Q4

REPORT INFORMATION
  Report Type: Report from Study
  Country: None (occurrence: NL)
  Receive Date: 20171219
  Receipt Date: 20171219
  Transmission Date: 20180321
  Serious: Yes (Death, Other)
  Sender: FDA-Public Use
  Company Number: NL-ABBVIE-17K-114-2197275-00

PATIENT
  Sex: Male

DRUGS (1)
  1. DUODOPA [Suspect]
     Active Substance: CARBIDOPA\LEVODOPA
     Indication: PARKINSON^S DISEASE
     Dosage: MD: 6, CD: 6.7, ED: 6, CND: 3.5
     Route: 050
     Dates: start: 20121121

REACTIONS (5)
  - Choking [Unknown]
  - Asphyxia [Unknown]
  - General physical health deterioration [Unknown]
  - Pleural effusion [Fatal]
  - Pneumonia [Recovered/Resolved]
